FAERS Safety Report 19155170 (Version 2)
Quarter: 2021Q2

REPORT INFORMATION
  Report Type: Spontaneous
  Country: CA (occurrence: CA)
  Receive Date: 20210419
  Receipt Date: 20210617
  Transmission Date: 20210717
  Serious: Yes (Other)
  Sender: FDA-Public Use
  Company Number: CA-NOVOPROD-803972

PATIENT
  Sex: Male
  Weight: 87 kg

DRUGS (5)
  1. CX?024414. [Suspect]
     Active Substance: CX-024414
     Indication: COVID-19 IMMUNISATION
     Dosage: UNK
     Route: 065
     Dates: start: 20200331
  2. BASAGLAR [Concomitant]
     Active Substance: INSULIN GLARGINE
     Indication: TYPE 1 DIABETES MELLITUS
     Dosage: UNK
     Route: 065
  3. NOVORAPID [Suspect]
     Active Substance: INSULIN ASPART
     Dosage: 17 IU, TID(DOSE INCREASED)
     Route: 065
  4. NOVORAPID [Suspect]
     Active Substance: INSULIN ASPART
     Dosage: (DIFFERENT BATCH NUMBER)
     Route: 065
  5. NOVORAPID [Suspect]
     Active Substance: INSULIN ASPART
     Indication: TYPE 1 DIABETES MELLITUS
     Dosage: UNK
     Route: 065

REACTIONS (4)
  - Blood glucose increased [Recovering/Resolving]
  - Drug interaction [Unknown]
  - Ketoacidosis [Unknown]
  - Product quality issue [Unknown]

NARRATIVE: CASE EVENT DATE: 20210331
